FAERS Safety Report 16730986 (Version 3)
Quarter: 2020Q3

REPORT INFORMATION
  Report Type: Spontaneous
  Country: US (occurrence: US)
  Receive Date: 20190822
  Receipt Date: 20200909
  Transmission Date: 20201102
  Serious: Yes (Other)
  Sender: FDA-Public Use
  Company Number: US-PFIZER INC-2019357191

PATIENT
  Age: 3 Year
  Sex: Male
  Weight: 20 kg

DRUGS (5)
  1. FENTANYL CITRATE. [Suspect]
     Active Substance: FENTANYL CITRATE
     Indication: SEDATION
     Dosage: UNK (POD 0?2: MAX DOSE 5MCG/KG/H)
  2. DEXMEDETOMIDINE. [Concomitant]
     Active Substance: DEXMEDETOMIDINE
     Dosage: UNK (POD 0?23 MAX DOSE 1 MCG/KG/H)
  3. FENTANYL CITRATE. [Suspect]
     Active Substance: FENTANYL CITRATE
     Indication: ANALGESIC THERAPY
  4. HYDROMORPHONE HYDROCHLORIDE. [Suspect]
     Active Substance: HYDROMORPHONE HYDROCHLORIDE
     Indication: ANALGESIC THERAPY
     Dosage: UNK(POD 2?26 AT MAX DOSE 0.2 MG/H BASAL WITH 0.2 MG BOLUS AS NEEDED (PRN))
     Route: 040
  5. HYDROMORPHONE HYDROCHLORIDE. [Suspect]
     Active Substance: HYDROMORPHONE HYDROCHLORIDE
     Indication: SEDATION

REACTIONS (2)
  - Intestinal dilatation [Recovered/Resolved]
  - Ileus [Recovered/Resolved]
